FAERS Safety Report 10543758 (Version 2)
Quarter: 2014Q4

REPORT INFORMATION
  Report Type: Spontaneous
  Country: US (occurrence: None)
  Receive Date: 20141010
  Receipt Date: 20141205
  Transmission Date: 20150529
  Serious: Yes (Hospitalization)
  Sender: FDA-Public Use
  Company Number: 163-POMAL-14070838

PATIENT
  Age: 71 Year
  Sex: Female

DRUGS (9)
  1. ASA (ACETYLSALICILIC ACID) [Concomitant]
  2. DEXAMETHASONE. [Concomitant]
     Active Substance: DEXAMETHASONE
  3. OXYCODONE [Concomitant]
     Active Substance: OXYCODONE
  4. POMALYST [Suspect]
     Active Substance: POMALIDOMIDE
     Indication: PLASMA CELL MYELOMA
     Dosage: 4MG, 21 IN 28 D, PO
     Route: 048
     Dates: start: 201311
  5. LYRICA [Concomitant]
     Active Substance: PREGABALIN
  6. LISINOPRIL. [Concomitant]
     Active Substance: LISINOPRIL
  7. MVI [Concomitant]
     Active Substance: VITAMINS
  8. PRILOSEC [Concomitant]
     Active Substance: OMEPRAZOLE MAGNESIUM
  9. CALCIUM [Concomitant]
     Active Substance: CALCIUM

REACTIONS (2)
  - Plasma cell myeloma recurrent [None]
  - Drug ineffective [None]

NARRATIVE: CASE EVENT DATE: 2014
